FAERS Safety Report 6095784-3 (Version None)
Quarter: 2009Q1

REPORT INFORMATION
  Report Type: 
  Country: None (occurrence: None)
  Receive Date: 20090227
  Receipt Date: 20080811
  Transmission Date: 20090719
  Serious: Yes (Other)
  Sender: FDA-Public Use
  Company Number: A0732989A

PATIENT
  Age: 56 Year
  Sex: Female

DRUGS (10)
  1. LAMICTAL [Suspect]
     Indication: BIPOLAR DISORDER
     Dosage: 25MG PER DAY
     Route: 048
     Dates: start: 20080501, end: 20080511
  2. METOPROLOL [Concomitant]
  3. OMEPRAZOLE [Concomitant]
  4. ESTER C [Concomitant]
  5. FUROSEMIDE [Concomitant]
  6. FISH OIL [Concomitant]
  7. VITAMIN B COMPLEX CAP [Concomitant]
  8. ASPIRIN [Concomitant]
  9. GLUCOSAMINE + CHONDROITIN [Concomitant]
  10. LAMICTAL [Concomitant]

REACTIONS (2)
  - PYREXIA [None]
  - RASH [None]
